FAERS Safety Report 4757698-8 (Version None)
Quarter: 2005Q3

REPORT INFORMATION
  Report Type: 
  Country: None (occurrence: None)
  Receive Date: 20050829
  Receipt Date: 20050818
  Transmission Date: 20060218
  Serious: Yes (Hospitalization, Other)
  Sender: FDA-Public Use
  Company Number: 2005106409

PATIENT
  Age: 72 Year
  Sex: Female
  Weight: 56.6996 kg

DRUGS (2)
  1. ZOLOFT [Suspect]
     Indication: DEPRESSION
     Dosage: 100 MG (100 MG, 1 IN 1 D), UNKNOWN
     Route: 065
  2. ADVIL [Concomitant]

REACTIONS (3)
  - DIVERTICULITIS [None]
  - GASTROINTESTINAL NECROSIS [None]
  - INSOMNIA [None]
